FAERS Safety Report 6979473-6 (Version None)
Quarter: 2010Q3

REPORT INFORMATION
  Report Type: 
  Country: None (occurrence: None)
  Receive Date: 20100910
  Receipt Date: 20100910
  Transmission Date: 20110219
  Serious: Yes (Death)
  Sender: FDA-Public Use
  Company Number: None

PATIENT
  Age: 39 Year
  Sex: Male
  Weight: 108.8633 kg

DRUGS (1)
  1. PRISTIQ [Suspect]
     Dosage: 75 MG - ONCE DAILY
     Dates: start: 20090501, end: 20090901

REACTIONS (8)
  - ABDOMINAL DISCOMFORT [None]
  - CARDIAC ARREST [None]
  - COMMUNICATION DISORDER [None]
  - CONVULSION [None]
  - DIARRHOEA [None]
  - HEADACHE [None]
  - HYPONATRAEMIA [None]
  - PAIN [None]
